FAERS Safety Report 5606151-8 (Version None)
Quarter: 2008Q1

REPORT INFORMATION
  Report Type: 
  Country: None (occurrence: None)
  Receive Date: 20080129
  Receipt Date: 20061206
  Transmission Date: 20080703
  Serious: No
  Sender: FDA-Public Use
  Company Number: A0630825A

PATIENT
  Sex: Female

DRUGS (1)
  1. WELLBUTRIN [Suspect]
     Dosage: 300MG IN THE MORNING
     Dates: start: 20061101

REACTIONS (3)
  - ANOREXIA [None]
  - DECREASED APPETITE [None]
  - FOOD AVERSION [None]
